FAERS Safety Report 4695573-8 (Version None)
Quarter: 2005Q2

REPORT INFORMATION
  Report Type: 
  Country: None (occurrence: None)
  Receive Date: 20050523
  Receipt Date: 20050516
  Transmission Date: 20051028
  Serious: Yes (Hospitalization)
  Sender: FDA-Public Use
  Company Number: 2005UW07571

PATIENT
  Age: 59 Year
  Sex: Male
  Weight: 153 kg

DRUGS (2)
  1. SEROQUEL [Suspect]
     Route: 048
     Dates: start: 19930101
  2. SEROQUEL [Suspect]
     Route: 048
     Dates: start: 19931201

REACTIONS (8)
  - BLOOD POTASSIUM DECREASED [None]
  - BLOOD UREA DECREASED [None]
  - DYSARTHRIA [None]
  - HALLUCINATION [None]
  - HEART RATE INCREASED [None]
  - NEUROLEPTIC MALIGNANT SYNDROME [None]
  - PLATELET DISORDER [None]
  - SALIVARY HYPERSECRETION [None]
